FAERS Safety Report 4353118-6 (Version None)
Quarter: 2004Q2

REPORT INFORMATION
  Report Type: 
  Country: None (occurrence: None)
  Receive Date: 20040429
  Receipt Date: 20040419
  Transmission Date: 20050107
  Serious: Yes (Life-Threatening)
  Sender: FDA-Public Use
  Company Number: 2004AP02283

PATIENT
  Sex: Female
  Weight: 46 kg

DRUGS (1)
  1. MARCAINE [Suspect]
     Indication: APPENDICECTOMY
     Dosage: 2.8 IT
     Route: 038

REACTIONS (4)
  - BLOOD PRESSURE DECREASED [None]
  - BRADYCARDIA [None]
  - FACIAL SPASM [None]
  - RETROGRADE AMNESIA [None]
